FAERS Safety Report 6889202-2 (Version None)
Quarter: 2010Q3

REPORT INFORMATION
  Report Type: 
  Country: None (occurrence: None)
  Receive Date: 20100730
  Receipt Date: 20080110
  Transmission Date: 20110219
  Serious: No
  Sender: FDA-Public Use
  Company Number: US-PFIZER INC-2008004135

PATIENT
  Sex: Male
  Weight: 136.36 kg

DRUGS (2)
  1. LIPITOR [Suspect]
     Indication: BLOOD CHOLESTEROL INCREASED
     Dates: start: 20070101, end: 20080109
  2. MICARDIS [Concomitant]
     Indication: HYPERTENSION

REACTIONS (1)
  - RASH [None]
